FAERS Safety Report 5240049-2 (Version None)
Quarter: 2007Q1

REPORT INFORMATION
  Report Type: 
  Country: None (occurrence: None)
  Receive Date: 20070216
  Receipt Date: 20070201
  Transmission Date: 20070707
  Serious: Yes (Other)
  Sender: FDA-Public Use
  Company Number: US-PFIZER INC-2007009512

PATIENT
  Sex: Female
  Weight: 63.5 kg

DRUGS (5)
  1. CHANTIX [Suspect]
     Indication: SMOKING CESSATION THERAPY
  2. TRAZODONE HCL [Concomitant]
  3. ESTRADIOL [Concomitant]
  4. PERCOCET [Concomitant]
  5. GABAPENTIN [Concomitant]

REACTIONS (2)
  - HEPATIC ENZYME INCREASED [None]
  - LIPASE INCREASED [None]
